FAERS Safety Report 22278856 (Version 1)
Quarter: 2023Q2

REPORT INFORMATION
  Report Type: Spontaneous
  Country: CA (occurrence: CA)
  Receive Date: 20230503
  Receipt Date: 20230503
  Transmission Date: 20230721
  Serious: Yes (Other)
  Sender: FDA-Public Use
  Company Number: CA-002147023-NVSC2023CA096689

PATIENT
  Age: 86 Year
  Sex: Male

DRUGS (9)
  1. HYDROCORTISONE [Suspect]
     Active Substance: HYDROCORTISONE
     Indication: Cutaneous T-cell lymphoma
     Dosage: UNK UNK, BID
     Route: 061
  2. ALITRETINOIN [Suspect]
     Active Substance: ALITRETINOIN
     Indication: Cutaneous T-cell lymphoma
     Dosage: 30 MG, QD
     Route: 048
  3. DESOXIMETASONE [Suspect]
     Active Substance: DESOXIMETASONE
     Indication: Cutaneous T-cell lymphoma
     Dosage: UNK
     Route: 061
  4. ALFUZOSIN [Concomitant]
     Active Substance: ALFUZOSIN
     Indication: Product used for unknown indication
     Dosage: UNK
     Route: 065
  5. APIXABAN [Concomitant]
     Active Substance: APIXABAN
     Indication: Product used for unknown indication
     Dosage: UNK
     Route: 065
  6. DILTIAZEM [Concomitant]
     Active Substance: DILTIAZEM
     Indication: Product used for unknown indication
     Dosage: UNK
     Route: 065
  7. LASIX [Concomitant]
     Active Substance: FUROSEMIDE
     Indication: Product used for unknown indication
     Dosage: UNK
     Route: 065
  8. PANTOPRAZOLE [Concomitant]
     Active Substance: PANTOPRAZOLE
     Indication: Product used for unknown indication
     Dosage: UNK
     Route: 065
  9. PERINDOPRIL [Concomitant]
     Active Substance: PERINDOPRIL
     Indication: Product used for unknown indication
     Dosage: UNK
     Route: 065

REACTIONS (12)
  - Dermatitis exfoliative generalised [Unknown]
  - Asthenia [Unknown]
  - Blood follicle stimulating hormone increased [Unknown]
  - Adrenal insufficiency [Unknown]
  - Cachexia [Unknown]
  - Central hypothyroidism [Unknown]
  - Constipation [Unknown]
  - Fall [Unknown]
  - Muscle disorder [Unknown]
  - Normocytic anaemia [Unknown]
  - Orthostatic hypertension [Unknown]
  - Blood testosterone decreased [Unknown]
